FAERS Safety Report 6265148-8 (Version None)
Quarter: 2009Q3

REPORT INFORMATION
  Report Type: 
  Country: None (occurrence: None)
  Receive Date: 20090709
  Receipt Date: 20090709
  Transmission Date: 20100115
  Serious: Yes (Other)
  Sender: FDA-Public Use
  Company Number: None

PATIENT
  Age: 78 Year
  Sex: Female
  Weight: 61.2356 kg

DRUGS (1)
  1. LEVAQUIN [Suspect]
     Indication: TOOTH EXTRACTION
     Dosage: 750 MG 1 A DAY 5 LEFT
     Dates: start: 20090602, end: 20090603

REACTIONS (10)
  - ARTHRALGIA [None]
  - ARTHROPATHY [None]
  - DIARRHOEA [None]
  - DIZZINESS [None]
  - HEADACHE [None]
  - NAUSEA [None]
  - PAIN [None]
  - PALPITATIONS [None]
  - TINNITUS [None]
  - VERTIGO [None]
